FAERS Safety Report 25223398 (Version 1)
Quarter: 2025Q2

REPORT INFORMATION
  Report Type: Spontaneous
  Country: US (occurrence: US)
  Receive Date: 20250422
  Receipt Date: 20250422
  Transmission Date: 20250716
  Serious: Yes (Other)
  Sender: COOPERSURGICAL
  Company Number: US-COOPERSURGICAL, INC.-2025CPS002974

PATIENT
  Age: 49 Year
  Sex: Female
  Weight: 77.098 kg

DRUGS (3)
  1. PARAGARD T 380A [Suspect]
     Active Substance: COPPER
     Route: 015
     Dates: start: 20090925
  2. DULOXETINE [Concomitant]
     Active Substance: DULOXETINE
     Dates: start: 201601
  3. GABAPENTIN [Concomitant]
     Active Substance: GABAPENTIN
     Dates: start: 201601

REACTIONS (5)
  - Hysterectomy [Recovered/Resolved]
  - Device breakage [Recovered/Resolved]
  - Foreign body in reproductive tract [Recovered/Resolved]
  - Complication of device removal [Recovered/Resolved]
  - Abnormal uterine bleeding [Recovered/Resolved]

NARRATIVE: CASE EVENT DATE: 20180725
